FAERS Safety Report 14232766 (Version 1)
Quarter: 2017Q4

REPORT INFORMATION
  Report Type: Report from Study
  Country: US (occurrence: US)
  Receive Date: 20171128
  Receipt Date: 20171128
  Transmission Date: 20180321
  Serious: Yes (Other)
  Sender: FDA-Public Use
  Company Number: US-BAUSCH-BL-2017-032389

PATIENT
  Age: 70 Year
  Sex: Female

DRUGS (1)
  1. DEXAMETHASONE SODIUM PHOSPHATE OPHTHALMIC SOLUTION USP 0.1% [Suspect]
     Active Substance: DEXAMETHASONE SODIUM PHOSPHATE
     Indication: OCULAR PEMPHIGOID
     Dosage: NON-PRESERVED DEXAMETHASONE
     Route: 061

REACTIONS (2)
  - Ophthalmic herpes simplex [Recovered/Resolved]
  - Corneal defect [Recovered/Resolved]
